FAERS Safety Report 21808777 (Version 1)
Quarter: 2023Q1

REPORT INFORMATION
  Report Type: Report from Study
  Country: GB (occurrence: None)
  Receive Date: 20230103
  Receipt Date: 20230103
  Transmission Date: 20230418
  Serious: Yes (Other)
  Sender: FDA-Public Use
  Company Number: GB-002147023-NVSC2022GB298877

PATIENT
  Sex: Female

DRUGS (3)
  1. METHOTREXATE [Suspect]
     Active Substance: METHOTREXATE
     Indication: Product used for unknown indication
     Route: 065
  2. COSENTYX [Suspect]
     Active Substance: SECUKINUMAB
     Indication: Psoriatic arthropathy
     Dosage: 300/2 MILLIGRAM PER MILLILITRE
     Route: 058
     Dates: end: 2019
  3. COSENTYX [Concomitant]
     Active Substance: SECUKINUMAB
     Route: 065

REACTIONS (2)
  - Liver injury [Unknown]
  - Varices oesophageal [Unknown]
